FAERS Safety Report 12223042 (Version 1)
Quarter: 2016Q1

REPORT INFORMATION
  Report Type: Spontaneous
  Country: US (occurrence: US)
  Receive Date: 20160330
  Receipt Date: 20160330
  Transmission Date: 20160526
  Serious: No
  Sender: FDA-Public Use
  Company Number: US-PERRIGO-16US000308

PATIENT
  Age: 77 Year
  Sex: Female
  Weight: 63.49 kg

DRUGS (9)
  1. CALCIUM [Concomitant]
     Active Substance: CALCIUM
     Indication: SUPPLEMENTATION THERAPY
     Dosage: UNK
     Route: 065
  2. ACETAMINOPHEN. [Suspect]
     Active Substance: ACETAMINOPHEN
     Indication: ARTHRALGIA
  3. ATENOLOL. [Concomitant]
     Active Substance: ATENOLOL
     Indication: CARDIAC DISORDER
     Dosage: UNK
     Route: 065
     Dates: start: 2005
  4. LISINOPRIL. [Concomitant]
     Active Substance: LISINOPRIL
     Indication: HYPERTENSION
     Dosage: UNK
     Route: 065
  5. ASPIRIN                            /00002701/ [Concomitant]
     Active Substance: ASPIRIN
     Indication: CARDIAC DISORDER
     Dosage: UNK
     Route: 065
  6. ATORVASTATIN [Concomitant]
     Active Substance: ATORVASTATIN
     Indication: BLOOD CHOLESTEROL INCREASED
     Dosage: UNK
     Route: 065
     Dates: start: 2005
  7. VITAMIN E                          /00110501/ [Concomitant]
     Active Substance: TOCOPHEROL
     Indication: SUPPLEMENTATION THERAPY
     Dosage: UNK
     Route: 065
  8. MAGNESIUM [Concomitant]
     Active Substance: MAGNESIUM
     Indication: SUPPLEMENTATION THERAPY
     Dosage: UNK
     Route: 065
  9. ACETAMINOPHEN. [Suspect]
     Active Substance: ACETAMINOPHEN
     Indication: BACK PAIN
     Dosage: 1300 MG, PRN
     Route: 048
     Dates: start: 201601, end: 201601

REACTIONS (1)
  - Drug ineffective [Unknown]

NARRATIVE: CASE EVENT DATE: 201601
